FAERS Safety Report 9816647 (Version 1)
Quarter: 2014Q1

REPORT INFORMATION
  Report Type: Spontaneous
  Country: US (occurrence: US)
  Receive Date: 20140114
  Receipt Date: 20140114
  Transmission Date: 20141002
  Serious: Yes (Hospitalization)
  Sender: FDA-Public Use
  Company Number: US-ELI_LILLY_AND_COMPANY-US201401000935

PATIENT
  Age: 67 Year
  Sex: Female

DRUGS (3)
  1. CYMBALTA [Suspect]
     Indication: DEPRESSION
     Dosage: 30 MG, QD
     Route: 065
  2. CYMBALTA [Suspect]
     Dosage: 30 MG, QD
     Route: 065
     Dates: end: 201312
  3. LEXAPRO [Concomitant]
     Indication: DEPRESSION
     Dosage: UNK

REACTIONS (6)
  - Pneumonia [Unknown]
  - Decreased appetite [Recovered/Resolved]
  - Ageusia [Recovered/Resolved]
  - Dysgeusia [Recovered/Resolved]
  - Fatigue [Unknown]
  - Aphagia [Recovered/Resolved]
